FAERS Safety Report 16680866 (Version 2)
Quarter: 2020Q3

REPORT INFORMATION
  Report Type: Spontaneous
  Country: US (occurrence: US)
  Receive Date: 20190808
  Receipt Date: 20200709
  Transmission Date: 20201102
  Serious: Yes (Other)
  Sender: FDA-Public Use
  Company Number: US-SUN PHARMACEUTICAL INDUSTRIES LTD-2019R1-215197

PATIENT
  Age: 7 Year
  Sex: Male

DRUGS (1)
  1. VALPROIC ACID. [Suspect]
     Active Substance: VALPROIC ACID
     Indication: EPILEPSY
     Dosage: UNK
     Route: 065

REACTIONS (7)
  - Nephrotic syndrome [Unknown]
  - Acidosis [Unknown]
  - Proteinuria [Unknown]
  - Hypophosphataemia [Unknown]
  - Glycosuria [Unknown]
  - Fanconi syndrome [Unknown]
  - Hypokalaemia [Unknown]
